FAERS Safety Report 6841658-7 (Version None)
Quarter: 2010Q3

REPORT INFORMATION
  Report Type: 
  Country: None (occurrence: None)
  Receive Date: 20100714
  Receipt Date: 20090911
  Transmission Date: 20110219
  Serious: No
  Sender: FDA-Public Use
  Company Number: US-PFIZER INC-2007053548

PATIENT
  Sex: Female
  Weight: 83.9 kg

DRUGS (1)
  1. CHANTIX [Suspect]
     Indication: SMOKING CESSATION THERAPY
     Dosage: 0.5 MG, 2X/DAY
     Route: 048
     Dates: start: 20071201

REACTIONS (11)
  - ABDOMINAL DISTENSION [None]
  - ARTHRALGIA [None]
  - BLOOD POTASSIUM DECREASED [None]
  - CHRONIC OBSTRUCTIVE PULMONARY DISEASE [None]
  - FATIGUE [None]
  - FLATULENCE [None]
  - FRUSTRATION [None]
  - INTENTIONAL DRUG MISUSE [None]
  - NERVOUSNESS [None]
  - SLUGGISHNESS [None]
  - WEIGHT INCREASED [None]
